FAERS Safety Report 8851936 (Version 1)
Quarter: 2012Q4

REPORT INFORMATION
  Report Type: 
  Country: US (occurrence: US)
  Receive Date: 20121022
  Receipt Date: 20121022
  Transmission Date: 20130627
  Serious: Yes (Hospitalization, Other)
  Sender: FDA-Public Use
  Company Number: US-AMGEN-USASP2012066797

PATIENT
  Age: 68 Year
  Sex: Female

DRUGS (2)
  1. ENBREL [Suspect]
     Indication: RHEUMATOID ARTHRITIS
     Dosage: 50 mg, qwk
     Dates: start: 20120326, end: 20120917
  2. METHOTREXATE [Concomitant]
     Dosage: 10 pills 2.5 mg, qwk
     Route: 048
     Dates: start: 20120301

REACTIONS (2)
  - Colitis ischaemic [Unknown]
  - Rheumatoid arthritis [Not Recovered/Not Resolved]
